FAERS Safety Report 5309397-1 (Version None)
Quarter: 2007Q2

REPORT INFORMATION
  Report Type: 
  Country: None (occurrence: None)
  Receive Date: 20070424
  Receipt Date: 20070424
  Transmission Date: 20071010
  Serious: Yes (Hospitalization)
  Sender: FDA-Public Use
  Company Number: None

PATIENT
  Sex: Male
  Weight: 61.2356 kg

DRUGS (2)
  1. LIALDA [Suspect]
     Indication: COLITIS ULCERATIVE
     Dosage: 2 TABLETS EVERY MORNING PO
     Route: 048
     Dates: start: 20070413, end: 20070414
  2. IMODIUM [Concomitant]

REACTIONS (1)
  - PANCREATITIS [None]
